FAERS Safety Report 6405377-3 (Version None)
Quarter: 2009Q4

REPORT INFORMATION
  Report Type: 
  Country: None (occurrence: None)
  Receive Date: 20091016
  Receipt Date: 20091016
  Transmission Date: 20100525
  Serious: Yes (Life-Threatening, Hospitalization, Disabling)
  Sender: FDA-Public Use
  Company Number: None

PATIENT
  Age: 56 Year
  Sex: Female
  Weight: 58.9676 kg

DRUGS (3)
  1. PERCOCET-5 [Suspect]
     Indication: MUSCULOSKELETAL PAIN
     Dosage: 5/325MG 1 TO 2 TABLETS EVERY 4-6 HRS. PO
     Route: 048
  2. PERCOCET-5 [Suspect]
     Indication: NECK PAIN
     Dosage: 5/325MG 1 TO 2 TABLETS EVERY 4-6 HRS. PO
     Route: 048
  3. PERCOCET-5 [Suspect]
     Indication: PAIN IN EXTREMITY
     Dosage: 5/325MG 1 TO 2 TABLETS EVERY 4-6 HRS. PO
     Route: 048

REACTIONS (6)
  - ANAPHYLACTIC REACTION [None]
  - DYSKINESIA [None]
  - MUSCLE CONTRACTIONS INVOLUNTARY [None]
  - MUSCLE RIGIDITY [None]
  - MUSCLE SPASMS [None]
  - SENSORY DISTURBANCE [None]
